FAERS Safety Report 8332100-8 (Version None)
Quarter: 2012Q2

REPORT INFORMATION
  Report Type: 
  Country: None (occurrence: None)
  Receive Date: 20120502
  Receipt Date: 20120423
  Transmission Date: 20120825
  Serious: Yes (Hospitalization)
  Sender: FDA-Public Use
  Company Number: US-RB-039621-12

PATIENT
  Sex: Female

DRUGS (2)
  1. SUBOXONE [Suspect]
     Dosage: VARIOUS DOSES
     Route: 060
     Dates: start: 20120330, end: 20120401
  2. SUBOXONE [Suspect]
     Indication: DRUG DEPENDENCE
     Route: 060
     Dates: start: 20120401

REACTIONS (2)
  - DECREASED APPETITE [None]
  - FEELING ABNORMAL [None]
